FAERS Safety Report 4322347-X (Version None)
Quarter: 2004Q1

REPORT INFORMATION
  Report Type: 
  Country: None (occurrence: None)
  Receive Date: 20040319
  Receipt Date: 20040312
  Transmission Date: 20041129
  Serious: Yes (Other)
  Sender: FDA-Public Use
  Company Number: 2004JP000323

PATIENT
  Age: 22 Year
  Sex: Male
  Weight: 60 kg

DRUGS (1)
  1. PROTOPIC [Suspect]
     Indication: DERMATITIS ATOPIC
     Dosage: 0.10% , TOPICAL
     Route: 061
     Dates: start: 20010101, end: 20031001

REACTIONS (4)
  - DERMATITIS ATOPIC [None]
  - LYMPHADENOPATHY [None]
  - LYMPHOMA [None]
  - WEIGHT DECREASED [None]
